FAERS Safety Report 9373586 (Version 1)
Quarter: 2013Q2

REPORT INFORMATION
  Report Type: Spontaneous
  Country: GB (occurrence: GB)
  Receive Date: 20130627
  Receipt Date: 20130627
  Transmission Date: 20140414
  Serious: Yes (Other)
  Sender: FDA-Public Use
  Company Number: PHHY2013GB063984

PATIENT
  Age: 44 Year
  Sex: Female
  Weight: 98.87 kg

DRUGS (7)
  1. FLUCONAZOLE [Suspect]
     Indication: CANDIDA INFECTION
     Dosage: 1 DF, UNK
     Route: 048
     Dates: start: 20130609, end: 20130609
  2. QUETIAPINE [Concomitant]
     Dosage: 200 MG, UNK
  3. SERTRALINE [Concomitant]
     Dosage: 50 MG, UNK
  4. ATENOLOL [Concomitant]
     Dosage: 50 MG, UNK
  5. LAMOTRIGINE [Concomitant]
     Dosage: 150 MG, UNK
  6. IRON [Concomitant]
     Route: 048
  7. VITAMIIN C [Concomitant]

REACTIONS (1)
  - Skin disorder [Recovering/Resolving]
